FAERS Safety Report 9423260 (Version 2)
Quarter: 2013Q3

REPORT INFORMATION
  Report Type: Spontaneous
  Country: US (occurrence: US)
  Receive Date: 20130726
  Receipt Date: 20130827
  Transmission Date: 20140515
  Serious: No
  Sender: FDA-Public Use
  Company Number: US-UCBSA-092589

PATIENT
  Sex: Male

DRUGS (3)
  1. KEPPRA XR [Suspect]
     Indication: CONVULSION
     Dates: start: 201301
  2. DILANTIN [Concomitant]
     Dosage: UNKNOWN
  3. DILANTIN [Concomitant]
     Dosage: UNKNOWN
     Dates: start: 2012, end: 201301

REACTIONS (2)
  - Contusion [Recovered/Resolved]
  - Inappropriate schedule of drug administration [Unknown]
